FAERS Safety Report 8371883-8 (Version None)
Quarter: 2012Q2

REPORT INFORMATION
  Report Type: 
  Country: None (occurrence: None)
  Receive Date: 20120518
  Receipt Date: 20120517
  Transmission Date: 20120825
  Serious: No
  Sender: FDA-Public Use
  Company Number: AU-ROCHE-1070093

PATIENT
  Sex: Female

DRUGS (1)
  1. ISOTRETINOIN [Suspect]
     Indication: PRODUCT USED FOR UNKNOWN INDICATION
     Route: 065

REACTIONS (1)
  - PREGNANCY [None]
